FAERS Safety Report 5894239-6 (Version None)
Quarter: 2008Q3

REPORT INFORMATION
  Report Type: 
  Country: None (occurrence: None)
  Receive Date: 20080923
  Receipt Date: 20080305
  Transmission Date: 20090109
  Serious: No
  Sender: FDA-Public Use
  Company Number: US-ASTRAZENECA-2008UW04517

PATIENT
  Age: 57 Year
  Sex: Female
  Weight: 117.9 kg

DRUGS (5)
  1. SEROQUEL [Suspect]
     Indication: INSOMNIA
     Route: 048
     Dates: end: 20080301
  2. LOVASTATIN [Concomitant]
  3. CARBAMAZEPINE [Concomitant]
  4. CELEBREX [Concomitant]
  5. ASPIRIN [Concomitant]

REACTIONS (5)
  - HEADACHE [None]
  - MALAISE [None]
  - MYALGIA [None]
  - NAUSEA [None]
  - TREMOR [None]
